FAERS Safety Report 4793917-X (Version None)
Quarter: 2005Q4

REPORT INFORMATION
  Report Type: 
  Country: None (occurrence: None)
  Receive Date: 20051006
  Receipt Date: 20050923
  Transmission Date: 20060501
  Serious: Yes (Hospitalization)
  Sender: FDA-Public Use
  Company Number: 2005BI014349

PATIENT
  Age: 37 Year
  Sex: Male
  Weight: 106.5953 kg

DRUGS (3)
  1. AVONEX [Suspect]
     Indication: MULTIPLE SCLEROSIS
     Dosage: 30 UG; QW; IM
     Route: 030
     Dates: start: 20050711
  2. PREDNISONE [Concomitant]
  3. TEGRETOL [Concomitant]

REACTIONS (6)
  - DIPLOPIA [None]
  - HEADACHE [None]
  - MULTIPLE SCLEROSIS [None]
  - MUSCLE SPASMS [None]
  - MYALGIA [None]
  - VISION BLURRED [None]
